FAERS Safety Report 18345952 (Version 1)
Quarter: 2020Q4

REPORT INFORMATION
  Report Type: Spontaneous
  Country: GB (occurrence: GB)
  Receive Date: 20201005
  Receipt Date: 20201005
  Transmission Date: 20210114
  Serious: Yes (Hospitalization, Disabling, Other)
  Sender: FDA-Public Use
  Company Number: GB-JNJFOC-20200939034

PATIENT
  Age: 14 Year
  Sex: Male
  Weight: 68 kg

DRUGS (3)
  1. CONCERTA [Suspect]
     Active Substance: METHYLPHENIDATE HYDROCHLORIDE
     Indication: ATTENTION DEFICIT HYPERACTIVITY DISORDER
     Route: 048
     Dates: start: 2016, end: 20200828
  2. SERTRALINE HYDROCHLORIDE. [Suspect]
     Active Substance: SERTRALINE HYDROCHLORIDE
     Indication: DEPRESSION
     Route: 048
     Dates: start: 2016
  3. GUANFACINE HYDROCHLORIDE. [Suspect]
     Active Substance: GUANFACINE HYDROCHLORIDE
     Indication: ATTENTION DEFICIT HYPERACTIVITY DISORDER
     Route: 048
     Dates: start: 2019

REACTIONS (5)
  - Troponin increased [Unknown]
  - Blood lactate dehydrogenase increased [Unknown]
  - Rhabdomyolysis [Recovering/Resolving]
  - Blood creatine phosphokinase increased [Unknown]
  - Myositis [Recovering/Resolving]

NARRATIVE: CASE EVENT DATE: 202008
